FAERS Safety Report 23630148 (Version 1)
Quarter: 2024Q1

REPORT INFORMATION
  Report Type: Spontaneous
  Country: IN (occurrence: None)
  Receive Date: 20240314
  Receipt Date: 20240314
  Transmission Date: 20240410
  Serious: Yes (Other)
  Sender: FDA-Public Use
  Company Number: IN-Umedica-000010

PATIENT
  Age: 46 Year
  Sex: Male

DRUGS (1)
  1. TADALAFIL [Suspect]
     Active Substance: TADALAFIL
     Indication: Substance use

REACTIONS (5)
  - Generalised bullous fixed drug eruption [Recovering/Resolving]
  - Product use in unapproved indication [Unknown]
  - Self-medication [Unknown]
  - Skin hyperpigmentation [Recovering/Resolving]
  - Blister [Recovered/Resolved]
